FAERS Safety Report 5343482-3 (Version None)
Quarter: 2007Q2

REPORT INFORMATION
  Report Type: 
  Country: None (occurrence: None)
  Receive Date: 20070604
  Receipt Date: 20070524
  Transmission Date: 20071010
  Serious: Yes (Other)
  Sender: FDA-Public Use
  Company Number: PHHO2006BR19121

PATIENT
  Age: 43 Year
  Sex: Male
  Weight: 86 kg

DRUGS (10)
  1. TRILEPTAL [Suspect]
     Indication: BIPOLAR DISORDER
     Dosage: 1/2 TAB AM, 1/2 TAB PM
     Route: 048
  2. TRILEPTAL [Suspect]
     Dosage: 300MG
     Route: 048
  3. TRILEPTAL [Suspect]
     Dosage: 600 MG, QD
     Route: 048
     Dates: start: 20020101
  4. CLOXAZOLAM [Suspect]
  5. HALDOL [Suspect]
     Dosage: 5MG
  6. HALDOL [Suspect]
     Dosage: 0.5MG
  7. CENTRUM [Suspect]
  8. FENERGAN [Suspect]
  9. ZURCAL [Suspect]
     Dosage: 40 MG
  10. PLASIL [Suspect]

REACTIONS (23)
  - AGGRESSION [None]
  - AMNESIA [None]
  - ANDROPAUSE [None]
  - BLOOD TESTOSTERONE INCREASED [None]
  - BLOOD THYROID STIMULATING HORMONE INCREASED [None]
  - CHEST PAIN [None]
  - DRY SKIN [None]
  - GASTRITIS [None]
  - HALLUCINATION [None]
  - HEPATIC STEATOSIS [None]
  - LIBIDO DECREASED [None]
  - MAJOR DEPRESSION [None]
  - MOOD ALTERED [None]
  - OEDEMA PERIPHERAL [None]
  - PROGESTERONE INCREASED [None]
  - PSYCHOTIC DISORDER [None]
  - SOMNOLENCE [None]
  - SPEECH DISORDER [None]
  - SUICIDE ATTEMPT [None]
  - THYROXINE INCREASED [None]
  - TRI-IODOTHYRONINE INCREASED [None]
  - VISUAL ACUITY REDUCED [None]
  - VOMITING [None]
